FAERS Safety Report 25736783 (Version 1)
Quarter: 2025Q3

REPORT INFORMATION
  Report Type: Report from Study
  Country: CA (occurrence: CA)
  Receive Date: 20250828
  Receipt Date: 20250828
  Transmission Date: 20251021
  Serious: Yes (Hospitalization)
  Sender: ABBVIE
  Company Number: CA-ABBVIE-6431998

PATIENT
  Age: 27 Year
  Sex: Male

DRUGS (4)
  1. RINVOQ [Suspect]
     Active Substance: UPADACITINIB
     Indication: Crohn^s disease
     Route: 048
     Dates: start: 20241219
  2. ABILIFY [Concomitant]
     Active Substance: ARIPIPRAZOLE
     Indication: Product used for unknown indication
  3. LURASIDONE [Concomitant]
     Active Substance: LURASIDONE
     Indication: Product used for unknown indication
  4. NABILONE [Concomitant]
     Active Substance: NABILONE
     Indication: Nausea

REACTIONS (13)
  - Mental disorder [Unknown]
  - Delusion [Recovering/Resolving]
  - Grandiosity [Recovering/Resolving]
  - Diarrhoea [Unknown]
  - Insomnia [Unknown]
  - Abnormal behaviour [Unknown]
  - Disorganised speech [Unknown]
  - Abdominal pain [Recovered/Resolved]
  - Irritability [Recovering/Resolving]
  - Agitation [Recovering/Resolving]
  - Abdominal pain [Unknown]
  - Anxiety [Unknown]
  - Nausea [Unknown]

NARRATIVE: CASE EVENT DATE: 20250801
